FAERS Safety Report 9628874 (Version 1)
Quarter: 2013Q4

REPORT INFORMATION
  Report Type: Spontaneous
  Country: FR (occurrence: FR)
  Receive Date: 20131017
  Receipt Date: 20131017
  Transmission Date: 20140711
  Serious: Yes (Hospitalization)
  Sender: FDA-Public Use
  Company Number: FR-JNJFOC-20131005514

PATIENT
  Age: 51 Year
  Sex: Female

DRUGS (4)
  1. KETODERM [Suspect]
     Indication: PRODUCT USED FOR UNKNOWN INDICATION
     Route: 065
     Dates: start: 20130304, end: 20130319
  2. TERBINAFINE [Suspect]
     Indication: INTERTRIGO
     Route: 048
     Dates: start: 20130304, end: 20130319
  3. TERBINAFINE [Suspect]
     Indication: INTERTRIGO
     Route: 061
     Dates: start: 20130304, end: 20130319
  4. VALACICLOVIR [Suspect]
     Indication: SUPERINFECTION
     Route: 048
     Dates: start: 201303, end: 20130319

REACTIONS (1)
  - Drug reaction with eosinophilia and systemic symptoms [Recovered/Resolved]
